FAERS Safety Report 4510923-0 (Version None)
Quarter: 2004Q4

REPORT INFORMATION
  Report Type: 
  Country: None (occurrence: None)
  Receive Date: 20041025
  Receipt Date: 20040323
  Transmission Date: 20050328
  Serious: Yes (Hospitalization, Disabling, Other)
  Sender: FDA-Public Use
  Company Number: NSADSS2002046358

PATIENT
  Age: 42 Year
  Sex: Male
  Weight: 63.5036 kg

DRUGS (7)
  1. REMICADE [Suspect]
     Indication: PSORIASIS
     Dosage: SEE IMAGE
     Route: 041
     Dates: start: 20020309, end: 20020309
  2. REMICADE [Suspect]
     Indication: PSORIASIS
     Dosage: SEE IMAGE
     Route: 041
     Dates: start: 20020601, end: 20020601
  3. REMICADE [Suspect]
  4. REMICADE [Suspect]
  5. REMICADE [Suspect]
  6. ETHAMBUTOL (ETHAMBUTOL) [Concomitant]
  7. PZA (PYRAZINAMIDE) [Concomitant]

REACTIONS (1)
  - TUBERCULOSIS [None]
